FAERS Safety Report 9601272 (Version 1)
Quarter: 2013Q4

REPORT INFORMATION
  Report Type: Spontaneous
  Country: AU (occurrence: AU)
  Receive Date: 20131006
  Receipt Date: 20131006
  Transmission Date: 20140711
  Serious: Yes (Other)
  Sender: FDA-Public Use
  Company Number: PHHY2013AU111205

PATIENT
  Sex: Male

DRUGS (7)
  1. ZOMETA [Suspect]
     Dosage: UNK UKN, UNK
  2. PREDNISOLONE [Suspect]
     Dosage: UNK UKN, UNK
  3. CALTRATE [Concomitant]
     Dosage: UNK UKN, UNK
  4. NAPROSYN [Concomitant]
     Dosage: UNK UKN, UNK
  5. NEXIUM//ESOMEPRAZOLE MAGNESIUM [Concomitant]
     Dosage: UNK UKN, UNK
  6. PANAMAX [Concomitant]
     Dosage: UNK UKN, UNK
  7. SOLPRIN [Concomitant]
     Dosage: UNK UKN, UNK

REACTIONS (1)
  - Osteonecrosis of jaw [Unknown]
